FAERS Safety Report 23556110 (Version 1)
Quarter: 2024Q1

REPORT INFORMATION
  Report Type: Spontaneous
  Country: US (occurrence: US)
  Receive Date: 20240222
  Receipt Date: 20240222
  Transmission Date: 20240410
  Serious: Yes (Other)
  Sender: FDA-Public Use
  Company Number: US-ABBVIE-5646697

PATIENT
  Sex: Male

DRUGS (1)
  1. REFRESH OPTIVE GEL DROPS [Suspect]
     Active Substance: CARBOXYMETHYLCELLULOSE SODIUM\GLYCERIN
     Indication: Dry eye
     Dosage: FORM STRENGTH CMC 10MG/ML;GLYCERIN 9MG/ML SOL
     Route: 047

REACTIONS (5)
  - Cataract [Unknown]
  - Vision blurred [Unknown]
  - Intraocular pressure increased [Unknown]
  - Pruritus [Unknown]
  - Therapeutic product effect incomplete [Unknown]
